FAERS Safety Report 16677093 (Version 1)
Quarter: 2019Q3

REPORT INFORMATION
  Report Type: Spontaneous
  Country: FR (occurrence: FR)
  Receive Date: 20190807
  Receipt Date: 20190807
  Transmission Date: 20191004
  Serious: Yes (Life-Threatening, Other)
  Sender: FDA-Public Use
  Company Number: FR-PURDUE-GBR-2019-0068767

PATIENT
  Age: 1 Month
  Sex: Male

DRUGS (1)
  1. NON-PMN MORPHINE SULFATE [Suspect]
     Active Substance: MORPHINE SULFATE
     Indication: FOETAL EXPOSURE DURING PREGNANCY
     Dosage: UNK (STRENGTH 0.1 MG/ML)
     Route: 048

REACTIONS (5)
  - Dizziness [Unknown]
  - Overdose [Unknown]
  - Respiratory failure [Unknown]
  - Miosis [Unknown]
  - Cyanosis [Unknown]
